FAERS Safety Report 6741470-3 (Version None)
Quarter: 2010Q2

REPORT INFORMATION
  Report Type: 
  Country: None (occurrence: None)
  Receive Date: 20100526
  Receipt Date: 20100514
  Transmission Date: 20101027
  Serious: Yes (Other)
  Sender: FDA-Public Use
  Company Number: US-SANOFI-AVENTIS-2010SA017020

PATIENT
  Age: 72 Year
  Sex: Male
  Weight: 63.96 kg

DRUGS (17)
  1. MULTAQ [Suspect]
     Indication: ATRIAL FIBRILLATION
     Route: 048
     Dates: start: 20100322, end: 20100322
  2. MULTAQ [Suspect]
     Indication: ATRIAL FLUTTER
     Route: 048
     Dates: start: 20100322, end: 20100322
  3. MULTAQ [Suspect]
     Route: 048
     Dates: start: 20100326
  4. MULTAQ [Suspect]
     Route: 048
     Dates: start: 20100326
  5. METOPROLOL [Concomitant]
     Indication: BLOOD PRESSURE
     Route: 048
  6. CARDIZEM [Concomitant]
     Indication: BLOOD PRESSURE
     Route: 048
  7. LANOXIN [Concomitant]
  8. WARFARIN SODIUM [Concomitant]
     Indication: THROMBOSIS PROPHYLAXIS
     Route: 048
  9. LISINOPRIL [Concomitant]
     Indication: BLOOD PRESSURE
  10. ASPIRIN [Concomitant]
     Indication: THROMBOSIS PROPHYLAXIS
  11. LASIX [Concomitant]
     Indication: DIURETIC THERAPY
  12. LEVALBUTEROL HYDROCHLORIDE [Concomitant]
     Indication: RESPIRATORY DISORDER
     Dosage: DOSE:1.25 UNIT(S)
  13. POTASSIUM [Concomitant]
     Indication: VITAMIN SUPPLEMENTATION
  14. PREDNISONE [Concomitant]
     Indication: INFLAMMATION
  15. ROPINIROLE [Concomitant]
  16. TYLENOL (CAPLET) [Concomitant]
     Indication: PAIN
  17. NITROGLYCERIN ^SLOVAKOFARMA^ [Concomitant]
     Indication: CHEST PAIN

REACTIONS (3)
  - DIZZINESS [None]
  - DYSSTASIA [None]
  - HYPOTENSION [None]
